FAERS Safety Report 12530697 (Version 2)
Quarter: 2016Q3

REPORT INFORMATION
  Report Type: Spontaneous
  Country: DE (occurrence: DE)
  Receive Date: 20160706
  Receipt Date: 20160721
  Transmission Date: 20161109
  Serious: Yes (Life-Threatening, Other)
  Sender: FDA-Public Use
  Company Number: DE-PFIZER INC-2016321485

PATIENT
  Age: 69 Year
  Sex: Male
  Weight: 92 kg

DRUGS (16)
  1. MAGNESIUM VERLA [Concomitant]
     Active Substance: MAGNESIUM
     Dosage: 1 DF, 1X/DAY
  2. XARELTO [Concomitant]
     Active Substance: RIVAROXABAN
     Dosage: 20 MG, 1X/DAY
  3. SALVYSAT [Concomitant]
     Dosage: 1 DF, 2X/DAY
  4. VITAMIN B12 [Concomitant]
     Active Substance: CYANOCOBALAMIN
     Dosage: 1000 UG, 1X/DAY
  5. CLINDAMYCIN PHOSPHATE. [Suspect]
     Active Substance: CLINDAMYCIN PHOSPHATE
     Indication: ERYSIPELAS
     Dosage: 300 MG, 2X/DAY
     Dates: start: 20160528
  6. L-THYROXIN [Concomitant]
     Active Substance: LEVOTHYROXINE SODIUM
     Dosage: 150 UG, 1X/DAY
  7. ZOPICLON [Concomitant]
     Active Substance: ZOPICLONE
     Indication: SCHIZOAFFECTIVE DISORDER
     Dosage: 37.5 MG, 1X/DAY
     Dates: start: 20160309
  8. CLOZAPINE. [Suspect]
     Active Substance: CLOZAPINE
     Indication: SCHIZOAFFECTIVE DISORDER
     Dosage: 250 MG, 1X/DAY
     Dates: start: 20160413
  9. RAMIPRIL. [Concomitant]
     Active Substance: RAMIPRIL
     Dosage: 5 MG, 2X/DAY
  10. RISPERIDON [Concomitant]
     Active Substance: RISPERIDONE
     Indication: SCHIZOAFFECTIVE DISORDER
     Dosage: 1 DF, 2X/DAY
     Dates: start: 201601
  11. SIMVASTATIN. [Concomitant]
     Active Substance: SIMVASTATIN
     Dosage: 20 MG, 1X/DAY
  12. MIRTAZAPIN [Concomitant]
     Active Substance: MIRTAZAPINE
     Dosage: 7.5 MG, 1X/DAY
  13. LAMOTRIGIN [Concomitant]
     Active Substance: LAMOTRIGINE
     Indication: PROPHYLAXIS
     Dosage: 200 MG, 1X/DAY
  14. TAVOR (LORAZEPAM) [Concomitant]
     Active Substance: LORAZEPAM
     Dosage: 0.75 MG, 1X/DAY
  15. AMLODIPIN [Concomitant]
     Active Substance: AMLODIPINE BESYLATE
     Dosage: 10 MG, 1X/DAY
  16. UNACID [Concomitant]
     Active Substance: AMPICILLIN SODIUM\SULBACTAM SODIUM
     Dosage: 375 MG, 3X/DAY

REACTIONS (1)
  - Atrioventricular block complete [Recovered/Resolved]

NARRATIVE: CASE EVENT DATE: 20160531
